FAERS Safety Report 6265984-8 (Version None)
Quarter: 2009Q3

REPORT INFORMATION
  Report Type: 
  Country: None (occurrence: None)
  Receive Date: 20090713
  Receipt Date: 20090703
  Transmission Date: 20100115
  Serious: Yes (Other)
  Sender: FDA-Public Use
  Company Number: US-ROCHE-642045

PATIENT
  Age: 70 Year
  Sex: Female

DRUGS (3)
  1. BONIVA [Suspect]
     Indication: DRUG USE FOR UNKNOWN INDICATION
     Dosage: THE PATIENT WAS NOT SURE OF INDICATION.
     Route: 065
     Dates: start: 20080101
  2. FISH OIL [Concomitant]
     Dosage: DISCONTINUED PRIOR TO SURGERY
  3. OSCAL [Concomitant]

REACTIONS (5)
  - CARPAL TUNNEL DECOMPRESSION [None]
  - HYPERHIDROSIS [None]
  - MUSCLE SPASMS [None]
  - MYALGIA [None]
  - VITAMIN D DECREASED [None]
